FAERS Safety Report 5627555-3 (Version None)
Quarter: 2008Q1

REPORT INFORMATION
  Report Type: 
  Country: None (occurrence: None)
  Receive Date: 20080215
  Receipt Date: 20071214
  Transmission Date: 20080703
  Serious: No
  Sender: FDA-Public Use
  Company Number: A0699053A

PATIENT
  Age: 67 Year
  Sex: Male

DRUGS (2)
  1. COREG CR [Suspect]
     Indication: DRUG USE FOR UNKNOWN INDICATION
     Dosage: 20MG PER DAY
     Route: 048
     Dates: start: 20070401
  2. ASPIRIN [Concomitant]

REACTIONS (1)
  - PAIN IN EXTREMITY [None]
